FAERS Safety Report 25815077 (Version 5)
Quarter: 2025Q4

REPORT INFORMATION
  Report Type: Report from Study
  Country: US (occurrence: None)
  Receive Date: 20250918
  Receipt Date: 20251222
  Transmission Date: 20260117
  Serious: Yes (Hospitalization, Other)
  Sender: UCB
  Company Number: US-UCBSA-2025057134

PATIENT
  Age: 47 Year
  Weight: 49.8 kg

DRUGS (3)
  1. FENFLURAMINE [Suspect]
     Active Substance: FENFLURAMINE
     Indication: Lennox-Gastaut syndrome
     Dosage: 0.53 MILLIGRAM/KILOGRAM/DAY (26.4 MILLIGRAM/DAY)
  2. FENFLURAMINE [Suspect]
     Active Substance: FENFLURAMINE
     Dosage: 6 MILLILITER, 2X/DAY (BID)
  3. FENFLURAMINE [Suspect]
     Active Substance: FENFLURAMINE
     Dosage: 26.4 MILLIGRAM PER DAY

REACTIONS (3)
  - Mitral valve thickening [Unknown]
  - Hospitalisation [Not Recovered/Not Resolved]
  - Mitral valve incompetence [Unknown]
